FAERS Safety Report 16397240 (Version 1)
Quarter: 2019Q2

REPORT INFORMATION
  Report Type: Report from Study
  Country: IT (occurrence: IT)
  Receive Date: 20190606
  Receipt Date: 20190606
  Transmission Date: 20190711
  Serious: Yes (Other)
  Sender: FDA-Public Use
  Company Number: IT-JAZZ-2019-IT-007556

PATIENT
  Age: 63 Year
  Sex: Female

DRUGS (1)
  1. VYXEOS [Suspect]
     Active Substance: CYTARABINE\DAUNORUBICIN
     Indication: ACUTE MYELOID LEUKAEMIA
     Dosage: 66.9 MG, QD
     Dates: start: 20190503

REACTIONS (3)
  - Motor dysfunction [Not Recovered/Not Resolved]
  - Coagulopathy [Not Recovered/Not Resolved]
  - Osteorrhagia [Not Recovered/Not Resolved]

NARRATIVE: CASE EVENT DATE: 20190521
